FAERS Safety Report 5878915-7 (Version None)
Quarter: 2008Q3

REPORT INFORMATION
  Report Type: 
  Country: None (occurrence: None)
  Receive Date: 20080912
  Receipt Date: 20080903
  Transmission Date: 20090109
  Serious: Yes (Other)
  Sender: FDA-Public Use
  Company Number: US-SOLVAY-00208003800

PATIENT
  Sex: Male

DRUGS (4)
  1. LONG ACTING INSULIN [Concomitant]
     Indication: DIABETES MELLITUS
     Dosage: DAILY DOSE: 15 INTERNATIONAL UNIT(S)
     Route: 058
     Dates: start: 20080601
  2. ANDROGEL [Suspect]
     Indication: BLOOD TESTOSTERONE DECREASED
     Dosage: DAILY DOSE:  UNKNOWN
     Route: 062
     Dates: start: 20080701
  3. ASACOL [Concomitant]
     Indication: IRRITABLE BOWEL SYNDROME
     Dosage: DAILY DOSE: 1200 MILLIGRAM(S)
     Route: 048
     Dates: start: 20080101
  4. UNKNOWN BLOOD PRESSURE MEDICATION [Concomitant]
     Indication: HYPERTENSION
     Dosage: DAILY DOSE:  UNKNOWN
     Route: 048
     Dates: start: 20040101

REACTIONS (4)
  - BLOOD POTASSIUM INCREASED [None]
  - HYPOAESTHESIA [None]
  - PROTEIN URINE PRESENT [None]
  - RENAL IMPAIRMENT [None]
